FAERS Safety Report 25263650 (Version 2)
Quarter: 2025Q2

REPORT INFORMATION
  Report Type: Spontaneous
  Country: KR (occurrence: KR)
  Receive Date: 20250502
  Receipt Date: 20250506
  Transmission Date: 20250716
  Serious: Yes (Hospitalization, Other)
  Sender: BAXTER
  Company Number: KR-BAXTER-2025BAX014938

PATIENT
  Age: 21 Year
  Sex: Female

DRUGS (1)
  1. AMINO ACIDS\DEXTROSE\ELECTROLYTES NOS\SOYBEAN OIL [Suspect]
     Active Substance: AMINO ACIDS\DEXTROSE\ELECTROLYTES NOS\SOYBEAN OIL
     Route: 042
     Dates: start: 20250418

REACTIONS (6)
  - Shock [Not Recovered/Not Resolved]
  - Dizziness [Not Recovered/Not Resolved]
  - Abdominal pain [Unknown]
  - Diarrhoea [Not Recovered/Not Resolved]
  - Vomiting [Unknown]
  - Nausea [Unknown]

NARRATIVE: CASE EVENT DATE: 20250418
